FAERS Safety Report 6570072-7 (Version None)
Quarter: 2010Q1

REPORT INFORMATION
  Report Type: 
  Country: None (occurrence: None)
  Receive Date: 20100204
  Receipt Date: 20100120
  Transmission Date: 20100710
  Serious: Yes (Hospitalization, Other)
  Sender: FDA-Public Use
  Company Number: JP-ROCHE-683451

PATIENT
  Age: 36 Year
  Sex: Female

DRUGS (8)
  1. HERCEPTIN [Suspect]
     Indication: BREAST CANCER METASTATIC
     Route: 041
  2. XELODA [Suspect]
     Indication: BREAST CANCER METASTATIC
     Dosage: DRUG: XELODA 300(CAPECITABINE)
     Route: 048
     Dates: start: 20070401, end: 20080901
  3. XELODA [Suspect]
     Dosage: DRUG: XELODA 300(CAPECITABINE)
     Route: 048
     Dates: start: 20090714
  4. ENDOXAN [Suspect]
     Indication: BREAST CANCER METASTATIC
     Route: 065
     Dates: start: 20070401, end: 20080901
  5. PACLITAXEL [Concomitant]
     Route: 041
  6. VINORELBINE TARTRATE [Concomitant]
     Dosage: ROUTE: INTRAVENOUS (NOT OTHERWISE SPECIFIED)
     Route: 042
     Dates: start: 20060301
  7. ZOMETA [Concomitant]
     Dosage: ROUTE: INTRAVENOUS (NOT OTHERWISE SPECIFIED)
     Route: 042
  8. TYKERB [Concomitant]
     Route: 048
     Dates: start: 20090714

REACTIONS (2)
  - GRANULOCYTE COUNT DECREASED [None]
  - MONOPLEGIA [None]
